FAERS Safety Report 10267565 (Version 1)
Quarter: 2014Q2

REPORT INFORMATION
  Report Type: Spontaneous
  Country: US (occurrence: US)
  Receive Date: 20140630
  Receipt Date: 20140630
  Transmission Date: 20141212
  Serious: No
  Sender: FDA-Public Use
  Company Number: US-PFIZER INC-2014174469

PATIENT
  Age: 90 Year
  Sex: Male

DRUGS (1)
  1. XALKORI [Suspect]
     Indication: LUNG NEOPLASM MALIGNANT
     Dosage: 250 MG, 1 CAPSULE, TWICE DAILY
     Dates: start: 20140612

REACTIONS (2)
  - Dizziness [Unknown]
  - Vision blurred [Unknown]
